FAERS Safety Report 6733968-9 (Version None)
Quarter: 2010Q2

REPORT INFORMATION
  Report Type: 
  Country: None (occurrence: None)
  Receive Date: 20100520
  Receipt Date: 20100513
  Transmission Date: 20101027
  Serious: Yes (Death)
  Sender: FDA-Public Use
  Company Number: US-GENENTECH-289321

PATIENT
  Sex: Female
  Weight: 57 kg

DRUGS (33)
  1. RITUXIMAB [Suspect]
     Indication: RHEUMATOID ARTHRITIS
     Dosage: 500 MG, DAYS 1+15
     Route: 042
     Dates: start: 20090106, end: 20090708
  2. ATENOLOL [Concomitant]
     Indication: HYPERTENSION
     Dosage: UNK
     Route: 065
     Dates: start: 20040823, end: 20090816
  3. FOLIC ACID [Concomitant]
     Indication: DRUG USE FOR UNKNOWN INDICATION
     Dosage: 1 MG, QD
     Route: 048
     Dates: start: 20040823, end: 20090816
  4. NORVASC [Concomitant]
     Indication: HYPERTENSION
     Dosage: UNK
     Route: 065
     Dates: start: 20040823, end: 20090816
  5. RITALIN [Concomitant]
     Indication: NARCOLEPSY
     Dosage: UNK
     Route: 065
     Dates: start: 20060501, end: 20090816
  6. RESTASIS [Concomitant]
     Indication: DRY EYE
     Dosage: UNK
     Route: 065
     Dates: start: 20060701, end: 20090816
  7. CONSTULOSE [Concomitant]
     Indication: CONSTIPATION
     Dosage: UNK
     Route: 065
     Dates: start: 20060715, end: 20090816
  8. MORPHINE SULFATE [Concomitant]
     Indication: DRUG USE FOR UNKNOWN INDICATION
     Dosage: 200 MG, QAM
     Route: 048
     Dates: start: 20060715, end: 20090816
  9. MORPHINE SULFATE [Concomitant]
     Dosage: 100 MG, QHS
     Route: 048
     Dates: start: 20060715, end: 20090816
  10. MULTIPLE VITAMIN [Concomitant]
     Indication: VITAMIN SUPPLEMENTATION
     Dosage: UNK
     Route: 065
     Dates: start: 20060715, end: 20090816
  11. ECOTRIN [Concomitant]
     Indication: DRUG USE FOR UNKNOWN INDICATION
     Dosage: 325 MG, QD
     Route: 048
     Dates: start: 20060724, end: 20090816
  12. VITAMIN B-12 [Concomitant]
     Indication: PERNICIOUS ANAEMIA
     Dosage: UNK
     Route: 065
     Dates: start: 20060724, end: 20090816
  13. FORTEO [Concomitant]
     Indication: OSTEOPOROSIS
     Dosage: UNK
     Route: 065
     Dates: start: 20070307
  14. METHOTREXATE [Concomitant]
     Indication: DRUG USE FOR UNKNOWN INDICATION
     Dosage: 15 MG, 1/WEEK
     Route: 058
     Dates: start: 20070307, end: 20090816
  15. REGLAN [Concomitant]
     Indication: NAUSEA
     Dosage: UNK
     Route: 065
     Dates: start: 20070307, end: 20090816
  16. PRILOSEC [Concomitant]
     Indication: DYSPEPSIA
     Dosage: UNK
     Route: 065
     Dates: start: 20070321, end: 20090816
  17. ORENCIA [Concomitant]
     Indication: DRUG USE FOR UNKNOWN INDICATION
     Dosage: 500 MG, Q4W
     Route: 042
     Dates: start: 20070611, end: 20090816
  18. FLU VACCINE [Concomitant]
     Indication: PROPHYLAXIS
     Dosage: UNK
     Route: 065
     Dates: start: 20081101, end: 20081101
  19. CLOBETASOL PROPIONATE [Concomitant]
     Indication: FUNGAL SKIN INFECTION
     Dosage: UNK
     Route: 065
     Dates: start: 20081114, end: 20090218
  20. CEPHALEXIN [Concomitant]
     Indication: URINARY TRACT INFECTION
     Dosage: UNK
     Route: 065
     Dates: start: 20081127, end: 20081201
  21. PREDNISONE [Concomitant]
     Indication: DRUG USE FOR UNKNOWN INDICATION
     Dosage: 10 MG, QD
     Route: 048
     Dates: start: 20081201, end: 20090816
  22. BENADRYL [Concomitant]
     Indication: PREMEDICATION
     Dosage: 50 MG, X1
     Route: 048
     Dates: start: 20090106, end: 20090106
  23. BENADRYL [Concomitant]
     Dosage: 50 MG, X1
     Route: 042
     Dates: start: 20090120, end: 20090120
  24. BENADRYL [Concomitant]
     Dosage: 50 MG, X1
     Route: 048
     Dates: start: 20090624, end: 20090624
  25. METHYLPREDNISOLONE [Concomitant]
     Indication: PREMEDICATION
     Dosage: 100 MG, X1
     Route: 042
     Dates: start: 20090106, end: 20090106
  26. METHYLPREDNISOLONE [Concomitant]
     Dosage: 100 MG, X1
     Route: 042
     Dates: start: 20090120, end: 20090120
  27. METHYLPREDNISOLONE [Concomitant]
     Dosage: 100 MG, X1
     Route: 042
     Dates: start: 20090624, end: 20090624
  28. TYLENOL-500 [Concomitant]
     Indication: PREMEDICATION
     Dosage: 1000 MG, X1
     Route: 048
     Dates: start: 20090106, end: 20090106
  29. TYLENOL-500 [Concomitant]
     Dosage: 1000 MG, X1
     Route: 042
     Dates: start: 20090120, end: 20090120
  30. PILOCARPINE HCL [Concomitant]
     Indication: DRY MOUTH
     Dosage: UNK
     Route: 065
     Dates: start: 20090312, end: 20090520
  31. CIPRO [Concomitant]
     Indication: URINARY TRACT INFECTION
     Dosage: UNK
     Route: 065
     Dates: start: 20090406, end: 20090413
  32. KENALOG [Concomitant]
     Indication: JOINT EFFUSION
     Dosage: UNK
     Route: 065
     Dates: start: 20090429, end: 20090429
  33. ACETAMINOPHEN [Concomitant]
     Indication: PREMEDICATION
     Dosage: 1000 MG, X1
     Route: 048
     Dates: start: 20090624, end: 20090624

REACTIONS (1)
  - RESPIRATORY FAILURE [None]
